FAERS Safety Report 7406527-2 (Version None)
Quarter: 2011Q2

REPORT INFORMATION
  Report Type: 
  Country: None (occurrence: None)
  Receive Date: 20110405
  Receipt Date: 20110405
  Transmission Date: 20111010
  Serious: Yes (Disabling)
  Sender: FDA-Public Use
  Company Number: None

PATIENT
  Age: 62 Year
  Sex: Female
  Weight: 72.5755 kg

DRUGS (1)
  1. TRAVATAN Z [Suspect]
     Indication: GLAUCOMA
     Dosage: 1 DROP DAILY IN EACH EYE
     Route: 047
     Dates: start: 20100601, end: 20110329

REACTIONS (5)
  - EYE SWELLING [None]
  - EYE IRRITATION [None]
  - CHEST PAIN [None]
  - OCULAR HYPERAEMIA [None]
  - EYE PRURITUS [None]
